FAERS Safety Report 20775141 (Version 1)
Quarter: 2022Q2

REPORT INFORMATION
  Report Type: Report from Study
  Country: US (occurrence: US)
  Receive Date: 20220502
  Receipt Date: 20220502
  Transmission Date: 20220720
  Serious: Yes (Hospitalization, Other)
  Sender: FDA-Public Use
  Company Number: US-BRISTOL-MYERS SQUIBB COMPANY-2022-023227

PATIENT
  Age: 70 Year
  Sex: Male
  Weight: 77.1 kg

DRUGS (37)
  1. LENALIDOMIDE [Suspect]
     Active Substance: LENALIDOMIDE
     Indication: Follicular lymphoma
     Dosage: DOSE LAST STUDY DRUG ADMIN PRIOR AE AND SAE IS 20 MG START DATE OF MOST RECENT DOSE OF STUDY DRUG PR
     Route: 048
     Dates: start: 20210309
  2. MOSUNETUZUMAB [Suspect]
     Active Substance: MOSUNETUZUMAB
     Indication: Follicular lymphoma
     Dosage: DOSE LAST STUDY DRUG ADMIN PRIOR AE AND SAE IS 30 MG START AND END DATE OF MOST RECENT DOSE OF STUDY
     Route: 042
     Dates: start: 20220216
  3. ALLOPURINOL [Concomitant]
     Active Substance: ALLOPURINOL
     Indication: Product used for unknown indication
     Route: 048
     Dates: start: 20220309
  4. FAMOTIDINE [Concomitant]
     Active Substance: FAMOTIDINE
     Indication: Product used for unknown indication
     Dosage: 1 IN 1 AS REQUIRED
     Route: 042
     Dates: start: 20220302, end: 20220302
  5. FAMOTIDINE [Concomitant]
     Active Substance: FAMOTIDINE
     Dosage: 1 IN 1 AS REQUIRED
     Route: 048
     Dates: start: 20210315
  6. FAMOTIDINE [Concomitant]
     Active Substance: FAMOTIDINE
     Dosage: 1 IN 1 AS REQUIRED
     Route: 042
     Dates: start: 20220309, end: 20220309
  7. HYDROXYZINE HYDROCHLORIDE [Concomitant]
     Active Substance: HYDROXYZINE HYDROCHLORIDE
     Indication: Product used for unknown indication
     Dosage: 1 IN 1 D
     Route: 048
     Dates: start: 20220316
  8. MIRALAX [Concomitant]
     Active Substance: POLYETHYLENE GLYCOL 3350
     Indication: Constipation
     Dosage: 1 IN 1 AS REQUIRED
     Route: 048
     Dates: start: 20220316
  9. DIPHENHYDRAMINE [Concomitant]
     Active Substance: DIPHENHYDRAMINE
     Indication: Premedication
     Dosage: 1 IN 1 AS REQUIRED
     Route: 042
     Dates: start: 20220223, end: 20220223
  10. DIPHENHYDRAMINE [Concomitant]
     Active Substance: DIPHENHYDRAMINE
     Dosage: 1 IN 1 AS REQUIRED
     Route: 042
     Dates: start: 20220302, end: 20220302
  11. DIPHENHYDRAMINE [Concomitant]
     Active Substance: DIPHENHYDRAMINE
     Dosage: 1 IN 1 AS REQUIRED
     Route: 042
     Dates: start: 20220309, end: 20220309
  12. DIPHENHYDRAMINE [Concomitant]
     Active Substance: DIPHENHYDRAMINE
     Dosage: 1 IN 1 AS REQUIRED
     Route: 042
     Dates: start: 20220406, end: 20220406
  13. FENTANYL [Concomitant]
     Active Substance: FENTANYL
     Indication: Biopsy
     Dosage: 1 IN 1 AS REQUIRED
     Route: 042
     Dates: start: 20220325, end: 20220325
  14. ACETAMINOPHEN\HYDROCODONE [Concomitant]
     Active Substance: ACETAMINOPHEN\HYDROCODONE
     Indication: Abdominal pain
     Dosage: 1 IN 1 AS REQUIRED
     Route: 048
     Dates: start: 20220323
  15. ACETAMINOPHEN\HYDROCODONE [Concomitant]
     Active Substance: ACETAMINOPHEN\HYDROCODONE
     Dosage: 1 IN 1 AS REQUIRED
     Route: 048
     Dates: start: 20220223, end: 20220223
  16. ASCORBIC ACID [Concomitant]
     Active Substance: ASCORBIC ACID
     Indication: Product used for unknown indication
     Route: 048
     Dates: start: 20220121
  17. SODIUM CHLORIDE [Concomitant]
     Active Substance: SODIUM CHLORIDE
     Indication: Product used for unknown indication
     Dosage: 1 IN 1 AS REQUIRED
     Route: 065
     Dates: start: 20220223, end: 20220223
  18. SODIUM CHLORIDE [Concomitant]
     Active Substance: SODIUM CHLORIDE
     Dosage: 1 IN 1 AS REQUIRED
     Route: 042
     Dates: start: 20220309, end: 20220309
  19. SODIUM CHLORIDE [Concomitant]
     Active Substance: SODIUM CHLORIDE
     Dosage: 0.9 OTHER, 1 IN 1 AS REQUIRED
     Route: 042
     Dates: start: 20220323, end: 20220323
  20. HEPARIN [Concomitant]
     Active Substance: HEPARIN SODIUM
     Indication: Product used for unknown indication
     Dosage: 500 UNIT 1 IN 1 AS REQUIRED
     Route: 065
     Dates: start: 20220223, end: 20220223
  21. HEPARIN [Concomitant]
     Active Substance: HEPARIN SODIUM
     Dosage: 500 UNIT, 1 IN 1 AS REQUIRED
     Route: 065
     Dates: start: 20220309, end: 20220309
  22. HEPARIN [Concomitant]
     Active Substance: HEPARIN SODIUM
     Dosage: 500 UNIT, 1 IN 1 AS REQUIRED
     Route: 065
     Dates: start: 20220406, end: 20220406
  23. ASPIRIN [Concomitant]
     Active Substance: ASPIRIN
     Indication: Product used for unknown indication
     Dosage: 1 IN 1 AS REQUIRED
     Route: 048
     Dates: start: 20220324
  24. HYDROCODONE [Concomitant]
     Active Substance: HYDROCODONE
     Indication: Pain
     Dosage: 1 IN 1 AS REQUIRED
     Route: 048
     Dates: start: 20191121
  25. HYDROCODONE [Concomitant]
     Active Substance: HYDROCODONE
     Indication: Abdominal pain
     Dosage: 1 IN 1 AS REQUIRED
     Route: 048
     Dates: start: 20220302, end: 20220302
  26. HYDROMORPHONE [Concomitant]
     Active Substance: HYDROMORPHONE
     Indication: Biopsy
     Dosage: 1 IN 1 AS REQUIRED
     Route: 042
     Dates: start: 20220325, end: 20220325
  27. TRAZODONE [Concomitant]
     Active Substance: TRAZODONE HYDROCHLORIDE
     Indication: Insomnia
     Dosage: 1 IN 1 AS REQUIRED
     Route: 048
     Dates: start: 20220323
  28. ACYCLOVIR [Concomitant]
     Active Substance: ACYCLOVIR
     Indication: Product used for unknown indication
     Route: 048
     Dates: start: 20220216
  29. ACETAMINOPHEN [Concomitant]
     Active Substance: ACETAMINOPHEN
     Indication: Product used for unknown indication
     Dosage: 1 IN 1 AS REQUIRED
     Route: 048
     Dates: start: 20220223, end: 20220223
  30. ACETAMINOPHEN [Concomitant]
     Active Substance: ACETAMINOPHEN
     Dosage: 1 IN 1 AS REQUIRED
     Route: 048
     Dates: start: 20220302, end: 20220302
  31. ACETAMINOPHEN [Concomitant]
     Active Substance: ACETAMINOPHEN
     Dosage: 1 IN 1 AS REQUIRED
     Route: 048
     Dates: start: 20220309, end: 20220309
  32. ACETAMINOPHEN [Concomitant]
     Active Substance: ACETAMINOPHEN
     Route: 065
     Dates: start: 20220406, end: 20220406
  33. DEXAMETHASONE [Concomitant]
     Active Substance: DEXAMETHASONE
     Indication: Product used for unknown indication
     Dosage: 1 IN 1 AS REQUIRED
     Route: 042
     Dates: start: 20220223, end: 20220223
  34. DEXAMETHASONE [Concomitant]
     Active Substance: DEXAMETHASONE
     Dosage: 1 IN 1 AS REQUIRED
     Route: 042
     Dates: start: 20220302, end: 20220302
  35. DEXAMETHASONE [Concomitant]
     Active Substance: DEXAMETHASONE
     Dosage: 1 IN 1 AS REQUIRED
     Route: 042
     Dates: start: 20220309, end: 20220309
  36. MIDAZOLAM [Concomitant]
     Active Substance: MIDAZOLAM
     Indication: Biopsy
     Dosage: 1 IN 1 AS REQUIRED
     Route: 042
     Dates: start: 20220325, end: 20220325
  37. ZOLPIDEM [Concomitant]
     Active Substance: ZOLPIDEM TARTRATE
     Indication: Insomnia
     Dosage: 1 IN 1 AS REQUIRED
     Route: 048
     Dates: start: 20220323, end: 20220323

REACTIONS (1)
  - Acute kidney injury [Recovered/Resolved]

NARRATIVE: CASE EVENT DATE: 20220323
